FAERS Safety Report 23058424 (Version 1)
Quarter: 2023Q4

REPORT INFORMATION
  Report Type: Spontaneous
  Country: US (occurrence: None)
  Receive Date: 20231011
  Receipt Date: 20231011
  Transmission Date: 20240110
  Serious: Yes (Other)
  Sender: FDA-Public Use
  Company Number: None

PATIENT
  Age: 50 Year
  Sex: Female
  Weight: 54 kg

DRUGS (2)
  1. DOTAREM [Suspect]
     Active Substance: GADOTERATE MEGLUMINE
     Indication: Cancer screening
     Route: 042
     Dates: start: 20230928
  2. LEVOTHYROXINE [Concomitant]
     Active Substance: LEVOTHYROXINE

REACTIONS (7)
  - Dizziness [None]
  - Headache [None]
  - Infusion related reaction [None]
  - Brain fog [None]
  - Vision blurred [None]
  - Muscle twitching [None]
  - Toxicity to various agents [None]

NARRATIVE: CASE EVENT DATE: 20230928
